FAERS Safety Report 11760135 (Version 1)
Quarter: 2015Q4

REPORT INFORMATION
  Report Type: Spontaneous
  Country: US (occurrence: US)
  Receive Date: 20151120
  Receipt Date: 20151120
  Transmission Date: 20160304
  Serious: No
  Sender: FDA-Public Use
  Company Number: US-ELI_LILLY_AND_COMPANY-US201211001298

PATIENT
  Age: 56 Year
  Sex: Female

DRUGS (6)
  1. FORTEO [Suspect]
     Active Substance: TERIPARATIDE
     Indication: OSTEOPOROSIS
     Dosage: 20 UG, QD
     Dates: start: 201207
  2. MAGNESIUM [Concomitant]
     Active Substance: MAGNESIUM
     Dosage: 2 DF, UNK
  3. CALCIUM CARBONATE. [Concomitant]
     Active Substance: CALCIUM CARBONATE
     Dosage: 1000 MG, UNK
  4. FORTEO [Suspect]
     Active Substance: TERIPARATIDE
     Dosage: 20 UG, QD
  5. STRONTIUM [Concomitant]
     Active Substance: STRONTIUM
     Dosage: UNK
     Dates: start: 201210
  6. CALCIUM CITRATE [Concomitant]
     Active Substance: CALCIUM CITRATE
     Dosage: 1000 MG, UNK

REACTIONS (15)
  - Insomnia [Unknown]
  - Muscle spasms [Unknown]
  - Injection site haemorrhage [Unknown]
  - Rhinorrhoea [Unknown]
  - Fear [Unknown]
  - Diarrhoea [Unknown]
  - Feeling abnormal [Unknown]
  - Cough [Unknown]
  - Injection site pain [Unknown]
  - Adverse event [Unknown]
  - Nausea [Unknown]
  - Injection site erythema [Unknown]
  - Memory impairment [Unknown]
  - Intentional product misuse [Unknown]
  - Dizziness [Unknown]

NARRATIVE: CASE EVENT DATE: 201207
